FAERS Safety Report 8974815 (Version 4)
Quarter: 2013Q2

REPORT INFORMATION
  Report Type: Report from Study
  Country: US (occurrence: US)
  Receive Date: 20121220
  Receipt Date: 20130404
  Transmission Date: 20140414
  Serious: Yes (Death)
  Sender: FDA-Public Use
  Company Number: US-FRI-1000041110

PATIENT
  Age: 50 Year
  Sex: Male
  Weight: 108.64 kg

DRUGS (1)
  1. VILAZODONE [Suspect]
     Indication: DEPRESSION
     Dosage: 20 MG
     Route: 048
     Dates: start: 20121023, end: 20121213

REACTIONS (1)
  - Death [Fatal]
